FAERS Safety Report 4334454-6 (Version None)
Quarter: 2004Q2

REPORT INFORMATION
  Report Type: 
  Country: None (occurrence: None)
  Receive Date: 20040407
  Receipt Date: 20030130
  Transmission Date: 20050107
  Serious: Yes (Hospitalization, Other)
  Sender: FDA-Public Use
  Company Number: JP-MERCK-0302USA00121

PATIENT
  Age: 82 Year
  Sex: Male

DRUGS (10)
  1. FLUNITRAZEPAM [Suspect]
     Route: 048
     Dates: start: 20020228, end: 20030128
  2. GLYBURIDE [Concomitant]
     Route: 065
     Dates: start: 19941012, end: 20030128
  3. IBUDILAST [Concomitant]
     Route: 065
     Dates: start: 19970617, end: 20030128
  4. ISOSORBIDE DINITRATE [Concomitant]
     Route: 065
     Dates: start: 20020228, end: 20030128
  5. COZAAR [Suspect]
     Route: 048
     Dates: start: 20020417, end: 20030128
  6. MAPROTILINE HYDROCHLORIDE [Concomitant]
     Route: 065
     Dates: start: 20020128, end: 20030128
  7. NICORANDIL [Concomitant]
     Route: 065
     Dates: start: 20020319, end: 20030128
  8. TIQUIZIUM BROMIDE [Concomitant]
     Route: 065
     Dates: start: 20020515, end: 20030128
  9. VOGLIBOSE [Concomitant]
     Route: 065
     Dates: start: 19961224, end: 20030128
  10. ASPIRIN [Concomitant]
     Route: 065
     Dates: start: 20020626, end: 20030128

REACTIONS (1)
  - RHABDOMYOLYSIS [None]
